FAERS Safety Report 7412636-4 (Version None)
Quarter: 2011Q2

REPORT INFORMATION
  Report Type: 
  Country: None (occurrence: None)
  Receive Date: 20110413
  Receipt Date: 20110411
  Transmission Date: 20111010
  Serious: Yes (Other)
  Sender: FDA-Public Use
  Company Number: US-PFIZER INC-2011023214

PATIENT
  Sex: Female

DRUGS (1)
  1. CHANTIX [Suspect]
     Indication: SMOKING CESSATION THERAPY
     Dosage: 1 MG, UNK
     Dates: start: 20090317, end: 20090331

REACTIONS (7)
  - SUICIDAL IDEATION [None]
  - DEPRESSION [None]
  - NIGHTMARE [None]
  - ANXIETY [None]
  - MENTAL DISORDER [None]
  - AGGRESSION [None]
  - ANGER [None]
